FAERS Safety Report 10046764 (Version 1)
Quarter: 2014Q1

REPORT INFORMATION
  Report Type: Spontaneous
  Country: BR (occurrence: BR)
  Receive Date: 20140331
  Receipt Date: 20140331
  Transmission Date: 20141002
  Serious: Yes (Hospitalization)
  Sender: FDA-Public Use
  Company Number: BR-ELI_LILLY_AND_COMPANY-BR201403006676

PATIENT
  Age: 63 Year
  Sex: Female
  Weight: 90 kg

DRUGS (6)
  1. HUMALOG [Suspect]
     Indication: BLOOD GLUCOSE INCREASED
     Dosage: 6 IU, EACH MORNING
     Route: 065
     Dates: start: 201401
  2. HUMALOG [Suspect]
     Dosage: 10 IU, QD
     Route: 065
     Dates: start: 201401
  3. HUMALOG [Suspect]
     Dosage: 6 IU, EACH EVENING
     Route: 065
     Dates: start: 201401
  4. LEVOFLOXACINA [Suspect]
     Indication: PRODUCT USED FOR UNKNOWN INDICATION
     Dosage: UNK
     Route: 065
  5. LANTUS [Concomitant]
     Indication: PRODUCT USED FOR UNKNOWN INDICATION
     Dosage: 52 IU, EACH EVENING
     Route: 065
  6. METFORMINA                         /00082701/ [Concomitant]
     Indication: PRODUCT USED FOR UNKNOWN INDICATION
     Dosage: 850 MG, TID
     Route: 065

REACTIONS (5)
  - Gastrointestinal bacterial infection [Recovered/Resolved]
  - Malaise [Unknown]
  - Blood glucose abnormal [Unknown]
  - Blood glucose increased [Unknown]
  - Weight increased [Unknown]
